FAERS Safety Report 5399377-2 (Version None)
Quarter: 2007Q3

REPORT INFORMATION
  Report Type: 
  Country: None (occurrence: None)
  Receive Date: 20070727
  Receipt Date: 20070723
  Transmission Date: 20080115
  Serious: Yes (Other)
  Sender: FDA-Public Use
  Company Number: US-MERCK-0707USA01899

PATIENT
  Age: 65 Year
  Sex: Female

DRUGS (3)
  1. FOSAMAX [Suspect]
     Indication: OSTEOPOROSIS
     Route: 048
     Dates: start: 20031201, end: 20070626
  2. PREVACID [Concomitant]
     Route: 065
  3. PREMPRO [Concomitant]
     Route: 065

REACTIONS (2)
  - OSTEONECROSIS [None]
  - RESORPTION BONE INCREASED [None]
